FAERS Safety Report 8600324-8 (Version None)
Quarter: 2012Q3

REPORT INFORMATION
  Report Type: 
  Country: None (occurrence: None)
  Receive Date: 20120817
  Receipt Date: 20120809
  Transmission Date: 20120928
  Serious: Yes (Disabling, Other)
  Sender: FDA-Public Use
  Company Number: FR-BRISTOL-MYERS SQUIBB COMPANY-16846859

PATIENT
  Age: 15 Year
  Sex: Female

DRUGS (3)
  1. ABILIFY [Suspect]
     Indication: HALLUCINATION
     Dosage: INC TO 25MG, DECR TO 20MG
  2. ABILIFY [Suspect]
     Indication: POST-TRAUMATIC STRESS DISORDER
     Dosage: INC TO 25MG, DECR TO 20MG
  3. TERCIAN [Concomitant]

REACTIONS (4)
  - MUSCLE RIGIDITY [None]
  - OFF LABEL USE [None]
  - DYSPHAGIA [None]
  - OCULOGYRIC CRISIS [None]
